FAERS Safety Report 8520682-2 (Version None)
Quarter: 2012Q3

REPORT INFORMATION
  Report Type: 
  Country: None (occurrence: None)
  Receive Date: 20120719
  Receipt Date: 20120709
  Transmission Date: 20120928
  Serious: Yes (Hospitalization, Other)
  Sender: FDA-Public Use
  Company Number: US-009507513-2011SP042784

PATIENT

DRUGS (5)
  1. NUVARING [Suspect]
     Indication: CONTRACEPTION
     Dosage: 1 DF, QM
     Route: 067
     Dates: start: 20090811, end: 20090903
  2. NUVARING [Suspect]
     Indication: MENORRHAGIA
  3. NUVARING [Suspect]
     Indication: MENSTRUATION IRREGULAR
  4. HORMONAL CONTRACEPTIVES (UNSPECIFIED) [Concomitant]
     Indication: MENSTRUATION IRREGULAR
     Dosage: UNK
     Dates: start: 20090903, end: 20090901
  5. NUVARING [Suspect]
     Indication: DYSMENORRHOEA

REACTIONS (16)
  - ABORTION SPONTANEOUS [None]
  - PULMONARY EMBOLISM [None]
  - ABORTION THREATENED [None]
  - MITRAL VALVE INCOMPETENCE [None]
  - DIASTOLIC DYSFUNCTION [None]
  - DEEP VEIN THROMBOSIS [None]
  - SINUSITIS [None]
  - CHEST PAIN [None]
  - RIGHT VENTRICULAR SYSTOLIC PRESSURE INCREASED [None]
  - POLYCYSTIC OVARIES [None]
  - DYSPNOEA [None]
  - GROIN PAIN [None]
  - BLOOD COUNT ABNORMAL [None]
  - ADJUSTMENT DISORDER [None]
  - UNINTENDED PREGNANCY [None]
  - HYPERCOAGULATION [None]
